FAERS Safety Report 12568751 (Version 1)
Quarter: 2016Q3

REPORT INFORMATION
  Report Type: Other
  Country: TR (occurrence: TR)
  Receive Date: 20160719
  Receipt Date: 20160719
  Transmission Date: 20161109
  Serious: Yes (Death)
  Sender: FDA-Public Use
  Company Number: TR-DEXPHARM-20161435

PATIENT
  Age: 40 Year
  Sex: Female

DRUGS (1)
  1. DICLOFENAC INJECTION [Suspect]
     Active Substance: DICLOFENAC
     Indication: OTITIS MEDIA

REACTIONS (4)
  - Multiple organ dysfunction syndrome [Fatal]
  - Embolia cutis medicamentosa [Fatal]
  - Sepsis [Fatal]
  - Acute kidney injury [Fatal]
